FAERS Safety Report 5321884-9 (Version None)
Quarter: 2007Q2

REPORT INFORMATION
  Report Type: 
  Country: None (occurrence: None)
  Receive Date: 20070510
  Receipt Date: 20070430
  Transmission Date: 20071010
  Serious: Yes (Other)
  Sender: FDA-Public Use
  Company Number: IE-ABBOTT-07P-229-0362156-00

PATIENT
  Age: 12 Month
  Sex: Male

DRUGS (1)
  1. KLACID SUSPENSION [Suspect]
     Indication: LOWER RESPIRATORY TRACT INFECTION
     Route: 048
     Dates: start: 20070315, end: 20070315

REACTIONS (6)
  - ERYTHEMA [None]
  - EYE SWELLING [None]
  - HYPERSENSITIVITY [None]
  - RASH [None]
  - SWELLING FACE [None]
  - URTICARIA [None]
